FAERS Safety Report 6115674-7 (Version None)
Quarter: 2009Q1

REPORT INFORMATION
  Report Type: 
  Country: None (occurrence: None)
  Receive Date: 20090313
  Receipt Date: 20090306
  Transmission Date: 20090719
  Serious: No
  Sender: FDA-Public Use
  Company Number: US-B.I. PHARMACEUTICALS,INC./RIDGEFIELD-2007-BP-26867BP

PATIENT
  Sex: Female

DRUGS (4)
  1. SPIRIVA [Suspect]
     Indication: CHRONIC OBSTRUCTIVE PULMONARY DISEASE
     Dates: end: 20070101
  2. COMBIVENT [Concomitant]
  3. OXYGEN [Concomitant]
  4. ALBUTEROL SULFATE [Concomitant]
     Indication: DYSPNOEA

REACTIONS (3)
  - DRY THROAT [None]
  - OROPHARYNGEAL PAIN [None]
  - THROAT IRRITATION [None]
